FAERS Safety Report 11643762 (Version 1)
Quarter: 2015Q4

REPORT INFORMATION
  Report Type: Spontaneous
  Country: US (occurrence: US)
  Receive Date: 20151020
  Receipt Date: 20151020
  Transmission Date: 20160304
  Serious: No
  Sender: FDA-Public Use
  Company Number: US-BIOGENIDEC-2015BI138206

PATIENT
  Sex: Female

DRUGS (2)
  1. AVONEX [Suspect]
     Active Substance: INTERFERON BETA-1A
     Indication: MULTIPLE SCLEROSIS
     Route: 030
  2. AVONEX [Suspect]
     Active Substance: INTERFERON BETA-1A
     Indication: MULTIPLE SCLEROSIS
     Route: 030
     Dates: start: 20000511, end: 20110301

REACTIONS (15)
  - Mobility decreased [Recovered/Resolved]
  - Panic attack [Not Recovered/Not Resolved]
  - Pain [Unknown]
  - Limb discomfort [Recovered/Resolved]
  - Cataract [Not Recovered/Not Resolved]
  - Gait disturbance [Recovered/Resolved]
  - Amnesia [Recovered/Resolved]
  - Feeling cold [Recovered/Resolved]
  - Fatigue [Recovered/Resolved]
  - Pain in extremity [Recovered/Resolved]
  - Influenza like illness [Recovered/Resolved]
  - Hypersomnia [Recovered/Resolved]
  - Central nervous system lesion [Not Recovered/Not Resolved]
  - Depression [Recovered/Resolved]
  - Myalgia [Recovered/Resolved]
